FAERS Safety Report 9369231 (Version 2)
Quarter: 2013Q4

REPORT INFORMATION
  Report Type: Report from Study
  Country: US (occurrence: US)
  Receive Date: 20130626
  Receipt Date: 20131206
  Transmission Date: 20140711
  Serious: Yes (Death, Hospitalization)
  Sender: FDA-Public Use
  Company Number: PHEH2013US013667

PATIENT
  Age: 57 Year
  Sex: Female

DRUGS (1)
  1. AFINITOR [Suspect]
     Indication: NEUROENDOCRINE CARCINOMA METASTATIC
     Dosage: 10 MG, QD
     Route: 048
     Dates: start: 20130424, end: 20130515

REACTIONS (6)
  - Metabolic acidosis [Fatal]
  - Encephalopathy [Fatal]
  - Hyperosmolar state [Fatal]
  - Hyperglycaemia [Fatal]
  - Renal failure acute [Fatal]
  - Diarrhoea [Unknown]
